FAERS Safety Report 18124773 (Version 1)
Quarter: 2020Q3

REPORT INFORMATION
  Report Type: Spontaneous
  Country: US (occurrence: US)
  Receive Date: 20200807
  Receipt Date: 20200807
  Transmission Date: 20201103
  Serious: Yes (Other)
  Sender: FDA-Public Use
  Company Number: US-ELI_LILLY_AND_COMPANY-US202007012271

PATIENT
  Age: 32 Year
  Sex: Male

DRUGS (4)
  1. HUMALOG [Suspect]
     Active Substance: INSULIN LISPRO
     Dosage: 16 U, DAILY (15?16 UNITS)
     Route: 065
     Dates: start: 202006
  2. HUMULIN N [Suspect]
     Active Substance: INSULIN HUMAN
     Dosage: 20 U, OTHER (18?20 UNITS TWO TO THREE TIMES A DAY)
     Route: 065
     Dates: start: 202006
  3. HUMULIN N [Suspect]
     Active Substance: INSULIN HUMAN
     Indication: PRODUCT USED FOR UNKNOWN INDICATION
     Dosage: 20 U, OTHER (18?20 UNITS TWO TO THREE TIMES A DAY)
     Route: 065
  4. HUMALOG [Suspect]
     Active Substance: INSULIN LISPRO
     Indication: PRODUCT USED FOR UNKNOWN INDICATION
     Dosage: 16 U, DAILY (15?16 UNITS)
     Route: 065

REACTIONS (9)
  - Frustration tolerance decreased [Unknown]
  - Nausea [Unknown]
  - Headache [Unknown]
  - Loss of consciousness [Recovered/Resolved]
  - Anxiety [Unknown]
  - Panic reaction [Unknown]
  - Eye pain [Unknown]
  - Thirst [Unknown]
  - Blood glucose increased [Unknown]

NARRATIVE: CASE EVENT DATE: 202005
